FAERS Safety Report 17955512 (Version 1)
Quarter: 2020Q2

REPORT INFORMATION
  Report Type: Report from Study
  Country: None (occurrence: BR)
  Receive Date: 20200629
  Receipt Date: 20200629
  Transmission Date: 20200714
  Serious: Yes (Death)
  Sender: FDA-Public Use
  Company Number: BR-ABBVIE-20K-020-3462552-00

PATIENT
  Sex: Male
  Weight: 48 kg

DRUGS (4)
  1. CALCIUM [Concomitant]
     Active Substance: CALCIUM
     Indication: BONE DISORDER
  2. BUSCOPAN [Concomitant]
     Active Substance: BUTYLSCOPOLAMINE BROMIDE
     Indication: PAIN
  3. HUMIRA [Suspect]
     Active Substance: ADALIMUMAB
     Indication: CROHN^S DISEASE
     Route: 058
     Dates: start: 20171020, end: 20200315
  4. DICLOFENAC [Concomitant]
     Active Substance: DICLOFENAC
     Indication: PAIN

REACTIONS (11)
  - Hypersomnia [Unknown]
  - Asthenia [Not Recovered/Not Resolved]
  - Depression [Unknown]
  - Angina pectoris [Unknown]
  - Cardiac disorder [Fatal]
  - Influenza [Fatal]
  - Pneumonia [Fatal]
  - Decreased appetite [Not Recovered/Not Resolved]
  - Hypophagia [Unknown]
  - Depression [Not Recovered/Not Resolved]
  - Pain [Unknown]

NARRATIVE: CASE EVENT DATE: 2019
